FAERS Safety Report 12557702 (Version 2)
Quarter: 2016Q4

REPORT INFORMATION
  Report Type: Report from Study
  Country: None (occurrence: BR)
  Receive Date: 20160714
  Receipt Date: 20161025
  Transmission Date: 20170207
  Serious: Yes (Other)
  Sender: FDA-Public Use
  Company Number: BR-ABBVIE-16K-020-1672280-00

PATIENT
  Age: 35 Year
  Sex: Female
  Weight: 75 kg

DRUGS (3)
  1. HUMIRA [Suspect]
     Active Substance: ADALIMUMAB
     Indication: RHEUMATOID ARTHRITIS
     Route: 058
     Dates: start: 20110927, end: 20160918
  2. TECNOMET [Concomitant]
     Active Substance: METHOTREXATE
     Indication: ARTHRITIS
     Route: 048
     Dates: start: 201108
  3. SERETIDE [Concomitant]
     Active Substance: FLUTICASONE PROPIONATE\SALMETEROL XINAFOATE
     Indication: ASTHMA
     Dosage: 50MCG/250MCG??SPRAY
     Route: 055
     Dates: start: 1991

REACTIONS (10)
  - Swelling [Unknown]
  - Abasia [Recovering/Resolving]
  - Road traffic accident [Recovering/Resolving]
  - Osteoporosis [Unknown]
  - Oedema [Unknown]
  - Tibia fracture [Recovered/Resolved]
  - Muscle atrophy [Unknown]
  - Vitamin D deficiency [Recovered/Resolved]
  - Thrombosis [Unknown]
  - Hypoaesthesia [Recovered/Resolved]

NARRATIVE: CASE EVENT DATE: 20160315
